FAERS Safety Report 18232696 (Version 1)
Quarter: 2020Q3

REPORT INFORMATION
  Report Type: Spontaneous
  Country: US (occurrence: US)
  Receive Date: 20200903
  Receipt Date: 20200903
  Transmission Date: 20201103
  Serious: Yes (Hospitalization)
  Sender: FDA-Public Use
  Company Number: None

PATIENT
  Age: 30 Year
  Sex: Male

DRUGS (10)
  1. AMBRISENTAN 10MG TABLETS 30/BO: 10MG [Suspect]
     Active Substance: AMBRISENTAN
     Indication: PULMONARY ARTERIAL HYPERTENSION
     Route: 048
     Dates: start: 201408
  2. SPIRONOLACTONE. [Concomitant]
     Active Substance: SPIRONOLACTONE
  3. DIGOXIN. [Concomitant]
     Active Substance: DIGOXIN
  4. CARVEDILOL. [Concomitant]
     Active Substance: CARVEDILOL
  5. VENTOLIN HFA [Concomitant]
     Active Substance: ALBUTEROL SULFATE
  6. TORSEMIDE. [Concomitant]
     Active Substance: TORSEMIDE
  7. WARFARIN [Concomitant]
     Active Substance: WARFARIN
  8. SILDENAFIL. [Concomitant]
     Active Substance: SILDENAFIL
  9. OXYGEN INTRANSAL [Concomitant]
  10. LISINOPRIL. [Concomitant]
     Active Substance: LISINOPRIL

REACTIONS (7)
  - Pyrexia [None]
  - Dyspnoea [None]
  - Cough [None]
  - Respiratory failure [None]
  - Myalgia [None]
  - Headache [None]
  - SARS-CoV-2 test negative [None]

NARRATIVE: CASE EVENT DATE: 20200806
